FAERS Safety Report 19811745 (Version 2)
Quarter: 2021Q4

REPORT INFORMATION
  Report Type: Other
  Country: US (occurrence: US)
  Receive Date: 20210910
  Receipt Date: 20211001
  Transmission Date: 20220303
  Serious: No
  Sender: FDA-Public Use
  Company Number: US-NEUROCRINE BIOSCIENCES INC.-2021NBI04896

PATIENT

DRUGS (5)
  1. INGREZZA [Suspect]
     Active Substance: VALBENAZINE
     Indication: Tardive dyskinesia
     Dosage: 80 MILLIGRAM, QD
     Route: 048
     Dates: start: 20171006, end: 20210826
  2. INGREZZA [Suspect]
     Active Substance: VALBENAZINE
     Dosage: 40 MILLIGRAM, QD
     Route: 048
     Dates: start: 20170929, end: 20171005
  3. INGREZZA [Suspect]
     Active Substance: VALBENAZINE
     Dosage: 60 MILLIGRAM, QD
     Route: 048
     Dates: start: 20210827
  4. WELLBUTRIN [Interacting]
     Active Substance: BUPROPION HYDROCHLORIDE
  5. PROPRANOLOL [Interacting]
     Active Substance: PROPRANOLOL HYDROCHLORIDE

REACTIONS (4)
  - Drug interaction [Unknown]
  - Somnolence [Unknown]
  - Fatigue [Unknown]
  - Restlessness [Unknown]
